FAERS Safety Report 24626797 (Version 1)
Quarter: 2024Q4

REPORT INFORMATION
  Report Type: Spontaneous
  Country: US (occurrence: US)
  Receive Date: 20241115
  Receipt Date: 20241115
  Transmission Date: 20250114
  Serious: No
  Sender: NOVO NORDISK
  Company Number: US-NOVOPROD-1176502

PATIENT
  Age: 69 Year
  Sex: Female

DRUGS (2)
  1. NOVOLOG [Suspect]
     Active Substance: INSULIN ASPART
     Indication: Product used for unknown indication
     Dosage: UNK
     Route: 058
     Dates: start: 2013
  2. MANGOSTEEN [Concomitant]
     Indication: Product used for unknown indication
     Dosage: 2 PILLS A DAY

REACTIONS (3)
  - Bronchitis [Recovered/Resolved]
  - Nasal congestion [Unknown]
  - Weight increased [Unknown]
